FAERS Safety Report 14105176 (Version 1)
Quarter: 2017Q4

REPORT INFORMATION
  Report Type: Spontaneous
  Country: US (occurrence: US)
  Receive Date: 20171018
  Receipt Date: 20171018
  Transmission Date: 20180321
  Serious: No
  Sender: FDA-Public Use
  Company Number: US-009507513-1710USA000386

PATIENT
  Sex: Female
  Weight: 48.07 kg

DRUGS (1)
  1. NEXPLANON [Suspect]
     Active Substance: ETONOGESTREL
     Dosage: 68 MG/THREE YERAS
     Route: 059

REACTIONS (3)
  - No adverse event [Unknown]
  - Complication of device insertion [Recovered/Resolved]
  - Device difficult to use [Recovered/Resolved]
